FAERS Safety Report 9921032 (Version 3)
Quarter: 2014Q1

REPORT INFORMATION
  Report Type: Report from Study
  Country: DE (occurrence: DE)
  Receive Date: 20140225
  Receipt Date: 20140302
  Transmission Date: 20141002
  Serious: Yes (Hospitalization)
  Sender: FDA-Public Use
  Company Number: DE-ROCHE-612011

PATIENT
  Age: 47 Year
  Sex: Female
  Weight: 56 kg

DRUGS (7)
  1. RITUXIMAB [Suspect]
     Indication: NON-HODGKIN^S LYMPHOMA
     Dosage: DATE OF LAST DOSE PRIOR TO SAE: 18/JAN/2009
     Route: 042
  2. RITUXIMAB [Suspect]
     Route: 042
  3. MCP DROPS [Concomitant]
     Route: 065
  4. BUSCOPAN [Concomitant]
     Route: 048
  5. ZOFRAN [Concomitant]
     Route: 048
  6. FORTECORTIN [Concomitant]
     Route: 048
     Dates: start: 20090130, end: 20090202
  7. FORTECORTIN [Concomitant]
     Route: 048

REACTIONS (3)
  - Mucosal inflammation [Recovered/Resolved]
  - Stomatitis [Recovered/Resolved]
  - Nausea [Recovered/Resolved]
